FAERS Safety Report 8347933-1 (Version None)
Quarter: 2012Q2

REPORT INFORMATION
  Report Type: 
  Country: None (occurrence: None)
  Receive Date: 20120507
  Receipt Date: 20120424
  Transmission Date: 20120825
  Serious: Yes (Other)
  Sender: FDA-Public Use
  Company Number: 2012HGS-003202

PATIENT
  Age: 38 Year
  Sex: Female

DRUGS (9)
  1. MYCOPHENOLATE (MYCOPHENOLATE MOFETIL) (MYCOPHENOLATE MOFETIL) [Concomitant]
  2. CYCLOPHOSPHAMIDE [Concomitant]
  3. METHYLPREDNISOLONE [Concomitant]
  4. IMMUNOGLOBULINS (IMMUNOGLOBULINS NOS) (IMMUNOGLOBULINS NOS) [Concomitant]
  5. AZATHIOPRINE (AZATHIOPRINE) (AZATHIOPRINE) [Concomitant]
  6. RITUXIMAB (RITUXIMAB) (RITUXIMAB) [Concomitant]
  7. BENLYSTA [Suspect]
     Indication: SYSTEMIC LUPUS ERYTHEMATOSUS
     Dosage: INTRAVENOUS DRIP
     Route: 041
     Dates: start: 20111101
  8. METHOTREXATE [Concomitant]
  9. CYCLOSPORINE [Concomitant]

REACTIONS (2)
  - CONDITION AGGRAVATED [None]
  - SYSTEMIC LUPUS ERYTHEMATOSUS [None]
